FAERS Safety Report 23688944 (Version 1)
Quarter: 2024Q1

REPORT INFORMATION
  Report Type: Spontaneous
  Country: FR (occurrence: None)
  Receive Date: 20240329
  Receipt Date: 20240329
  Transmission Date: 20240410
  Serious: Yes (Hospitalization)
  Sender: FDA-Public Use
  Company Number: 2024A069150

PATIENT
  Age: 75 Year
  Sex: Female
  Weight: 74 kg

DRUGS (1)
  1. CRESTOR [Suspect]
     Active Substance: ROSUVASTATIN CALCIUM
     Indication: Arteriosclerosis
     Route: 048
     Dates: start: 20231221, end: 20240214

REACTIONS (2)
  - Pericardial effusion [Recovering/Resolving]
  - Pericarditis [Recovering/Resolving]

NARRATIVE: CASE EVENT DATE: 20240214
